FAERS Safety Report 11400633 (Version 1)
Quarter: 2015Q3

REPORT INFORMATION
  Report Type: Spontaneous
  Country: TR (occurrence: TR)
  Receive Date: 20150820
  Receipt Date: 20150820
  Transmission Date: 20151125
  Serious: Yes (Other)
  Sender: FDA-Public Use
  Company Number: ALCN2015TR004983

PATIENT
  Age: 75 Year
  Sex: Female

DRUGS (2)
  1. DEXASINE SE [Suspect]
     Active Substance: DEXAMETHASONE SODIUM PHOSPHATE
     Dosage: UNK, INCREASED FREQUENCY
     Route: 061
  2. DEXASINE SE [Suspect]
     Active Substance: DEXAMETHASONE SODIUM PHOSPHATE
     Indication: EYE PAIN
     Dosage: 1 DF, TID
     Route: 047

REACTIONS (6)
  - Blindness unilateral [Unknown]
  - Eye pain [Unknown]
  - Intentional product misuse [Unknown]
  - Ulcerative keratitis [Unknown]
  - Device dislocation [Unknown]
  - Corneal perforation [Unknown]
